FAERS Safety Report 22378065 (Version 2)
Quarter: 2023Q2

REPORT INFORMATION
  Report Type: Spontaneous
  Country: DE (occurrence: DE)
  Receive Date: 20230529
  Receipt Date: 20230604
  Transmission Date: 20230721
  Serious: Yes (Other)
  Sender: FDA-Public Use
  Company Number: DE-PEI-CADR2022267598

PATIENT
  Age: 62 Year
  Sex: Female
  Weight: 96 kg

DRUGS (9)
  1. LEVETIRACETAM [Suspect]
     Active Substance: LEVETIRACETAM
     Indication: Product used for unknown indication
     Dosage: 2 MILLILITER, ONCE A DAY
     Route: 065
     Dates: start: 201603
  2. LEVETIRACETAM [Suspect]
     Active Substance: LEVETIRACETAM
     Dosage: 2 MILLILITER, ONCE A DAY
     Route: 048
     Dates: start: 201802
  3. LEVETIRACETAM [Suspect]
     Active Substance: LEVETIRACETAM
     Dosage: 10 MILLILITER, ONCE A DAY
     Route: 048
     Dates: start: 201801
  4. LEVETIRACETAM [Suspect]
     Active Substance: LEVETIRACETAM
     Dosage: UNK
  5. COMIRNATY [Suspect]
     Active Substance: TOZINAMERAN
     Indication: COVID-19 immunisation
     Dosage: 0.3 MILLILITER (DOSE 2, 0.3 ML SINGLE  )
     Route: 065
     Dates: start: 20210707, end: 20210707
  6. CINNARIZINE\DIMENHYDRINATE [Suspect]
     Active Substance: CINNARIZINE\DIMENHYDRINATE
     Indication: Dizziness
     Dosage: UNK UNK, 3 TIMES A DAY
     Route: 065
     Dates: start: 20220202
  7. CHOLECALCIFEROL [Concomitant]
     Active Substance: CHOLECALCIFEROL
     Indication: Product used for unknown indication
     Dosage: 2 DOSAGE FORM, EVERY WEEK
     Route: 065
  8. FOLIC ACID [Concomitant]
     Active Substance: FOLIC ACID
     Indication: Product used for unknown indication
     Dosage: 2 DOSAGE FORM, ONCE A DAY
     Route: 065
     Dates: start: 201601
  9. FOLIC ACID [Concomitant]
     Active Substance: FOLIC ACID
     Dosage: 1 DF, DAILY
     Dates: start: 201602

REACTIONS (36)
  - Arrhythmia [Not Recovered/Not Resolved]
  - Cardiomyopathy [Not Recovered/Not Resolved]
  - Condition aggravated [Unknown]
  - Depressed level of consciousness [Not Recovered/Not Resolved]
  - Leukopenia [Unknown]
  - Respiratory failure [Not Recovered/Not Resolved]
  - Malaise [Not Recovered/Not Resolved]
  - Asthenia [Unknown]
  - Fatigue [Not Recovered/Not Resolved]
  - Fall [Unknown]
  - Neuralgia [Not Recovered/Not Resolved]
  - Blood pressure abnormal [Not Recovered/Not Resolved]
  - Dyspnoea [Not Recovered/Not Resolved]
  - Nervous system disorder [Not Recovered/Not Resolved]
  - Pain [Not Recovered/Not Resolved]
  - Memory impairment [Not Recovered/Not Resolved]
  - Movement disorder [Unknown]
  - Mood swings [Unknown]
  - Dizziness [Not Recovered/Not Resolved]
  - Vaccination site pain [Recovered/Resolved]
  - Dyspnoea exertional [Unknown]
  - Hypersomnia [Unknown]
  - Fibrin D dimer increased [Unknown]
  - Electric shock sensation [Unknown]
  - Headache [Not Recovered/Not Resolved]
  - Muscle spasms [Not Recovered/Not Resolved]
  - Aphasia [Not Recovered/Not Resolved]
  - Paraesthesia [Not Recovered/Not Resolved]
  - Brain fog [Unknown]
  - Arthralgia [Not Recovered/Not Resolved]
  - Pain in extremity [Not Recovered/Not Resolved]
  - Listless [Unknown]
  - Myalgia [Not Recovered/Not Resolved]
  - Lymphopenia [Unknown]
  - Somnolence [Unknown]
  - Limb discomfort [Not Recovered/Not Resolved]

NARRATIVE: CASE EVENT DATE: 20210707
